FAERS Safety Report 13066790 (Version 3)
Quarter: 2017Q1

REPORT INFORMATION
  Report Type: Report from Study
  Country: US (occurrence: US)
  Receive Date: 20161227
  Receipt Date: 20170106
  Transmission Date: 20170428
  Serious: Yes (Hospitalization)
  Sender: FDA-Public Use
  Company Number: US-ACTELION-A-US2016-147474

PATIENT
  Age: 50 Year
  Sex: Male

DRUGS (6)
  1. VENTAVIS [Suspect]
     Active Substance: ILOPROST
     Indication: PULMONARY ARTERIAL HYPERTENSION
     Dosage: 2.5 MCG
     Route: 055
     Dates: start: 20160422
  2. SPIRONOLACTONE. [Concomitant]
     Active Substance: SPIRONOLACTONE
  3. SILDENAFIL CITRATE. [Concomitant]
     Active Substance: SILDENAFIL CITRATE
  4. METOLAZONE. [Concomitant]
     Active Substance: METOLAZONE
  5. XARELTO [Concomitant]
     Active Substance: RIVAROXABAN
  6. BUMEX [Concomitant]
     Active Substance: BUMETANIDE

REACTIONS (3)
  - Cough [Unknown]
  - Electrolyte imbalance [Unknown]
  - Drug intolerance [Unknown]
